FAERS Safety Report 6847166-1 (Version None)
Quarter: 2010Q3

REPORT INFORMATION
  Report Type: 
  Country: None (occurrence: None)
  Receive Date: 20100716
  Receipt Date: 20100708
  Transmission Date: 20110219
  Serious: No
  Sender: FDA-Public Use
  Company Number: US-BIOGENIDEC-2010BI023052

PATIENT
  Age: 42 Year
  Sex: Female

DRUGS (2)
  1. AVONEX [Suspect]
     Indication: MULTIPLE SCLEROSIS
     Route: 030
     Dates: start: 19980101, end: 20040401
  2. AVONEX [Suspect]
     Route: 030
     Dates: start: 20090402

REACTIONS (3)
  - HYPERAESTHESIA [None]
  - PAIN [None]
  - URINARY TRACT INFECTION [None]
